FAERS Safety Report 20671715 (Version 1)
Quarter: 2022Q2

REPORT INFORMATION
  Report Type: Spontaneous
  Country: SE (occurrence: SE)
  Receive Date: 20220405
  Receipt Date: 20220405
  Transmission Date: 20220721
  Serious: Yes (Other)
  Sender: FDA-Public Use
  Company Number: SE-DENTSPLY-2022SCDP000073

PATIENT
  Age: 64 Year
  Sex: Male

DRUGS (3)
  1. XYLOCAINE [Suspect]
     Active Substance: LIDOCAINE HYDROCHLORIDE
     Indication: Anaesthesia
     Dosage: 20 MG / ML + 12.5 MICROG / ML XYLOCAIN DENTAL ADRENALINE SOLUTION FOR INJECTION (XYLOCAINE WITH ADRE
     Route: 065
     Dates: start: 20180219, end: 20180219
  2. INSULIN NOS [Concomitant]
     Active Substance: INSULIN NOS
     Indication: Type 2 diabetes mellitus
     Dosage: UNK
     Route: 065
  3. METFORMIN [Concomitant]
     Active Substance: METFORMIN HYDROCHLORIDE
     Indication: Type 2 diabetes mellitus
     Dosage: UNK
     Route: 065

REACTIONS (5)
  - Optic nerve infarction [None]
  - Papilloedema [None]
  - Wrong dose [Unknown]
  - Visual impairment [None]
  - Retinal disorder [None]

NARRATIVE: CASE EVENT DATE: 20180219
